FAERS Safety Report 9516964 (Version 6)
Quarter: 2014Q3

REPORT INFORMATION
  Report Type: Spontaneous
  Country: US (occurrence: US)
  Receive Date: 20130911
  Receipt Date: 20140804
  Transmission Date: 20150326
  Serious: No
  Sender: FDA-Public Use
  Company Number: US-PFIZER INC-2012284286

PATIENT
  Age: 67 Year
  Sex: Female
  Weight: 81.18 kg

DRUGS (27)
  1. PROTONIX [Concomitant]
     Active Substance: PANTOPRAZOLE SODIUM
     Indication: GASTROOESOPHAGEAL REFLUX DISEASE
     Dosage: 40 MG, 2X/DAY
     Route: 048
     Dates: start: 1995
  2. UNITHROID [Concomitant]
     Active Substance: LEVOTHYROXINE SODIUM
     Indication: HYPOTHYROIDISM
     Dosage: 0.5 UG, 3X/DAY (0.5UG-3X)
     Dates: start: 1979
  3. PROPRANOLOL [Concomitant]
     Active Substance: PROPRANOLOL\PROPRANOLOL HYDROCHLORIDE
     Indication: HEART RATE INCREASED
     Dosage: 80 MG, AS NEEDED
     Dates: start: 1998
  4. ALPRAZOLAM. [Concomitant]
     Active Substance: ALPRAZOLAM
     Dosage: 1 MG, 4X/DAY
  5. MECLIZINE [Concomitant]
     Active Substance: MECLIZINE\MECLIZINE HYDROCHLORIDE
     Indication: VERTIGO
     Dosage: 125 MG, AS NEEDED
     Dates: start: 1995
  6. ADVIL [Concomitant]
     Active Substance: IBUPROFEN
     Indication: PAIN
     Dosage: 200, 4X/DAY (3 EVERY 6 HOURS)
     Dates: start: 1980
  7. BETHANECHOL [Concomitant]
     Active Substance: BETHANECHOL
     Indication: BLADDER DYSFUNCTION
     Dosage: 12.5 MG, 4X/DAY
     Dates: start: 2011
  8. FERREX 150 FORTE PLUS [Concomitant]
     Active Substance: CALCIUM ASCORBATE\CALCIUM THREONATE\CYANOCOBALAMIN\FOLIC ACID\IRON\SUCCINIC ACID
     Indication: ANAEMIA
     Dosage: 150 MG, 1X/DAY
     Dates: start: 2007
  9. INDERAL-LA [Concomitant]
     Dosage: 80 MG, UNK
  10. ADVIL [Concomitant]
     Active Substance: IBUPROFEN
     Dosage: 200 MG, AS NEEDED
  11. METHENAMINE HIPPURATE. [Concomitant]
     Active Substance: METHENAMINE HIPPURATE
     Indication: BLADDER DISORDER
     Dosage: 1 G, 1X/DAY
     Dates: start: 2011
  12. HYDROCODONE [Concomitant]
     Active Substance: HYDROCODONE
     Dosage: UNK, 3X/DAY
  13. CARTIA XT [Concomitant]
     Active Substance: DILTIAZEM HYDROCHLORIDE
     Dosage: 60 MG, DAILY
  14. METHENAMINE [Concomitant]
     Active Substance: METHENAMINE
     Dosage: 1 MG, DAILY
  15. LYRICA [Suspect]
     Active Substance: PREGABALIN
     Indication: FIBROMYALGIA
     Dosage: 100 MG, 4X/DAY
     Route: 048
  16. LIDODERM [Concomitant]
     Active Substance: LIDOCAINE
     Indication: POST HERPETIC NEURALGIA
     Dosage: 5%, 30 PATCHES PER 45 DAYS
     Dates: start: 2000
  17. UNITHROID [Concomitant]
     Active Substance: LEVOTHYROXINE SODIUM
     Dosage: 1.5 UG, DAILY
  18. XANAX [Concomitant]
     Active Substance: ALPRAZOLAM
     Indication: PANIC ATTACK
     Dosage: 1 MG, 4X/DAY
     Dates: start: 1988
  19. XANAX [Concomitant]
     Active Substance: ALPRAZOLAM
     Indication: SLEEP DISORDER
  20. LYRICA [Suspect]
     Active Substance: PREGABALIN
     Indication: POST HERPETIC NEURALGIA
     Dosage: 100 MG, 2X/DAY
     Route: 048
  21. LYRICA [Suspect]
     Active Substance: PREGABALIN
     Dosage: 300 MG, UNK
     Route: 048
  22. PAXIL [Concomitant]
     Active Substance: PAROXETINE HYDROCHLORIDE
     Dosage: UNK
  23. XANAX [Concomitant]
     Active Substance: ALPRAZOLAM
     Indication: ANXIETY
  24. LORTAB [Concomitant]
     Active Substance: ACETAMINOPHEN\HYDROCODONE BITARTRATE
     Indication: PAIN
     Dosage: 7.5/500, 3X/DAY
     Dates: start: 1989
  25. DILTIAZEM-ER [Concomitant]
     Indication: HEART RATE INCREASED
     Dosage: 120 MG, 1X/DAY
     Dates: start: 1991
  26. BETHANECHOL [Concomitant]
     Active Substance: BETHANECHOL
     Dosage: 15 MG, 2X/DAY
  27. LIDODERM [Concomitant]
     Active Substance: LIDOCAINE
     Indication: NEURALGIA
     Dosage: 1 MG, 4X/DAY

REACTIONS (3)
  - Headache [Unknown]
  - Weight increased [Not Recovered/Not Resolved]
  - Dizziness [Unknown]
